FAERS Safety Report 22223640 (Version 1)
Quarter: 2023Q2

REPORT INFORMATION
  Report Type: Spontaneous
  Country: None (occurrence: DE)
  Receive Date: 20230418
  Receipt Date: 20230418
  Transmission Date: 20230721
  Serious: Yes (Hospitalization, Other)
  Sender: FDA-Public Use
  Company Number: DE-B.Braun Medical Inc.-2140513

PATIENT
  Age: 68 Year
  Sex: Female

DRUGS (21)
  1. HEPARIN SODIUM IN DEXTROSE [Suspect]
     Active Substance: HEPARIN SODIUM
     Indication: Thrombosis prophylaxis
  2. VALERIAN TINCTURE [Concomitant]
  3. Beloc [Concomitant]
  4. Silomat [Concomitant]
  5. Baldrian-dispent [Concomitant]
  6. FUROSEMIDE [Concomitant]
     Active Substance: FUROSEMIDE
  7. CORDAREX [Suspect]
     Active Substance: AMIODARONE
  8. HYDROCHLOROTHIAZIDE\RAMIPRIL [Suspect]
     Active Substance: HYDROCHLOROTHIAZIDE\RAMIPRIL
  9. POTASSIUM CHLORIDE [Suspect]
     Active Substance: POTASSIUM CHLORIDE
  10. SPIRONOLACTONE [Suspect]
     Active Substance: SPIRONOLACTONE
  11. TORSEMIDE [Suspect]
     Active Substance: TORSEMIDE
  12. PHENPROCOUMON [Suspect]
     Active Substance: PHENPROCOUMON
  13. DIGITOXIN [Suspect]
     Active Substance: DIGITOXIN
  14. BISOPROLOL FUMARATE [Suspect]
     Active Substance: BISOPROLOL FUMARATE
  15. AQUAPHOR [Suspect]
     Active Substance: PETROLATUM
  16. AMPICILLIN SODIUM\SULBACTAM SODIUM [Suspect]
     Active Substance: AMPICILLIN SODIUM\SULBACTAM SODIUM
  17. DIGITOXIN [Suspect]
     Active Substance: DIGITOXIN
  18. UNSPECIFIED INGREDIENT [Suspect]
     Active Substance: UNSPECIFIED INGREDIENT
  19. TEMAZEPAM [Suspect]
     Active Substance: TEMAZEPAM
  20. MARCUMAR [Suspect]
     Active Substance: PHENPROCOUMON
  21. ALLOPURINOL [Suspect]
     Active Substance: ALLOPURINOL

REACTIONS (6)
  - Stevens-Johnson syndrome [Recovered/Resolved]
  - Target skin lesion [Recovered/Resolved]
  - Lip erosion [Recovered/Resolved]
  - Blister [Recovered/Resolved]
  - Pruritus [Recovered/Resolved]
  - Thrombosis prophylaxis [Recovered/Resolved]
